FAERS Safety Report 8494321-3 (Version None)
Quarter: 2012Q2

REPORT INFORMATION
  Report Type: 
  Country: None (occurrence: None)
  Receive Date: 20120628
  Receipt Date: 20120620
  Transmission Date: 20120825
  Serious: Yes (Hospitalization)
  Sender: FDA-Public Use
  Company Number: 2012SP034096

PATIENT
  Age: 24 Year
  Sex: Female

DRUGS (2)
  1. CLOBETASOL PROPIONATE [Suspect]
     Indication: PRODUCT USED FOR UNKNOWN INDICATION
     Dosage: QD; TOP
     Route: 061
     Dates: start: 20110901, end: 20111005
  2. BETAMETHASONE [Suspect]
     Indication: PRODUCT USED FOR UNKNOWN INDICATION
     Dosage: QD; TOP
     Route: 061
     Dates: start: 20110901, end: 20111005

REACTIONS (3)
  - CUSHING'S SYNDROME [None]
  - DIABETES MELLITUS [None]
  - ADRENAL SUPPRESSION [None]
